FAERS Safety Report 11174482 (Version 1)
Quarter: 2015Q2

REPORT INFORMATION
  Report Type: Spontaneous
  Country: CA (occurrence: CA)
  Receive Date: 20150609
  Receipt Date: 20150609
  Transmission Date: 20150821
  Serious: Yes (Other)
  Sender: FDA-Public Use
  Company Number: CA-PFIZER INC-2015187957

PATIENT
  Age: 12 Year
  Sex: Female

DRUGS (2)
  1. CORTEF [Suspect]
     Active Substance: HYDROCORTISONE
     Dosage: ONE DOSAGE FORM IN SUSPENSION TWICE DAILY
  2. CORTEF [Suspect]
     Active Substance: HYDROCORTISONE
     Dosage: 1 DF, 2X/DAY CRUSHED

REACTIONS (2)
  - Wrong technique in drug usage process [Unknown]
  - Anaphylactic reaction [Unknown]
